FAERS Safety Report 12242718 (Version 1)
Quarter: 2016Q2

REPORT INFORMATION
  Report Type: Spontaneous
  Country: JP (occurrence: JP)
  Receive Date: 20160406
  Receipt Date: 20160406
  Transmission Date: 20160815
  Serious: Yes (Hospitalization, Other)
  Sender: FDA-Public Use
  Company Number: JP-ASTRAZENECA-2016SE35620

PATIENT
  Age: 91 Year
  Sex: Male

DRUGS (1)
  1. ZOLADEX LA [Suspect]
     Active Substance: GOSERELIN ACETATE
     Route: 058
     Dates: end: 201512

REACTIONS (2)
  - Cerebral thrombosis [Unknown]
  - Platelet count decreased [Unknown]
